FAERS Safety Report 9704720 (Version 1)
Quarter: 2013Q4

REPORT INFORMATION
  Report Type: Spontaneous
  Country: US (occurrence: CA)
  Receive Date: 20131122
  Receipt Date: 20131122
  Transmission Date: 20140711
  Serious: Yes (Hospitalization, Other)
  Sender: FDA-Public Use
  Company Number: US-JNJFOC-20131112134

PATIENT
  Sex: Male

DRUGS (7)
  1. ITRACONAZOLE [Suspect]
     Indication: HISTOPLASMOSIS DISSEMINATED
     Route: 048
  2. ITRACONAZOLE [Suspect]
     Indication: HISTOPLASMOSIS DISSEMINATED
     Route: 048
     Dates: start: 2012
  3. REMICADE [Suspect]
     Indication: COLITIS ULCERATIVE
     Route: 042
  4. CIPROFLOXACIN [Interacting]
     Indication: HISTOPLASMOSIS DISSEMINATED
     Route: 048
  5. HUMIRA [Suspect]
     Indication: COLITIS ULCERATIVE
     Route: 065
  6. PREDNISONE [Suspect]
     Indication: COLITIS ULCERATIVE
     Route: 065
  7. METOPROLOL [Concomitant]
     Dosage: 25
     Route: 065

REACTIONS (3)
  - Drug interaction [Unknown]
  - Adrenal insufficiency [Unknown]
  - Cholelithiasis [Unknown]
